FAERS Safety Report 24304351 (Version 1)
Quarter: 2024Q3

REPORT INFORMATION
  Report Type: Spontaneous
  Country: US (occurrence: US)
  Receive Date: 20240910
  Receipt Date: 20240910
  Transmission Date: 20241017
  Serious: No
  Sender: MISSION
  Company Number: US-Mission Pharmacal Company-2161444

PATIENT
  Age: 67 Year
  Sex: Male

DRUGS (9)
  1. POTASSIUM CITRATE [Suspect]
     Active Substance: POTASSIUM CITRATE
     Route: 048
  2. THIOLA EC [Concomitant]
     Active Substance: TIOPRONIN
     Route: 048
     Dates: start: 20191020
  3. TIZANIDINE [Concomitant]
     Active Substance: TIZANIDINE
  4. TAMSULOSIN [Concomitant]
     Active Substance: TAMSULOSIN
  5. SIMVASTATIN [Concomitant]
     Active Substance: SIMVASTATIN
  6. PERCOCET [Concomitant]
     Active Substance: ACETAMINOPHEN\OXYCODONE HYDROCHLORIDE
  7. NAPROXEN [Concomitant]
     Active Substance: NAPROXEN
  8. MORPHINE [Concomitant]
     Active Substance: MORPHINE
  9. LOVAZA [Concomitant]
     Active Substance: OMEGA-3-ACID ETHYL ESTERS

REACTIONS (3)
  - Infection [Unknown]
  - Kidney fibrosis [Unknown]
  - Headache [Unknown]
